FAERS Safety Report 8537173-5 (Version None)
Quarter: 2012Q3

REPORT INFORMATION
  Report Type: 
  Country: None (occurrence: None)
  Receive Date: 20120725
  Receipt Date: 20120717
  Transmission Date: 20120928
  Serious: Yes (Other)
  Sender: FDA-Public Use
  Company Number: US-BRISTOL-MYERS SQUIBB COMPANY-16775728

PATIENT
  Age: 70 Year
  Sex: Female

DRUGS (1)
  1. YERVOY [Suspect]
     Dosage: LAST DOSE MAY12

REACTIONS (3)
  - PNEUMONIA [None]
  - FIBROMYALGIA [None]
  - TEMPORAL ARTERITIS [None]
